FAERS Safety Report 8647072 (Version 5)
Quarter: 2015Q3

REPORT INFORMATION
  Report Type: Report from Study
  Country: FR (occurrence: FR)
  Receive Date: 20120703
  Receipt Date: 20150706
  Transmission Date: 20151125
  Serious: Yes (Death, Hospitalization, Other)
  Sender: FDA-Public Use
  Company Number: FR-ACTELION-A-CH2011-57521

PATIENT
  Age: 9 Month
  Sex: Female
  Weight: 13.6 kg

DRUGS (18)
  1. ZAVESCA [Suspect]
     Active Substance: MIGLUSTAT
     Dosage: 50 MG, BID
     Route: 048
     Dates: start: 20120110, end: 201203
  2. ZAVESCA [Suspect]
     Active Substance: MIGLUSTAT
     Dosage: 50 MG, BID
     Route: 048
     Dates: start: 2013, end: 20140124
  3. MORPHINE [Concomitant]
     Active Substance: MORPHINE
  4. BACLOFEN. [Concomitant]
     Active Substance: BACLOFEN
     Dosage: UNK
     Dates: start: 2013
  5. ZAVESCA [Suspect]
     Active Substance: MIGLUSTAT
     Dosage: 50 MG, TID
     Route: 048
     Dates: start: 2012
  6. VITAMINS [Concomitant]
     Active Substance: VITAMINS
  7. ATARAX [Concomitant]
     Active Substance: HYDROXYZINE\HYDROXYZINE HYDROCHLORIDE
     Dosage: UNK
     Dates: start: 2014
  8. ZAVESCA [Suspect]
     Active Substance: MIGLUSTAT
     Dosage: 100 MG, TID
     Route: 048
  9. PARACETAMOL [Concomitant]
     Active Substance: ACETAMINOPHEN
  10. VITAMIN K1 [Concomitant]
     Active Substance: PHYTONADIONE
  11. ZAVESCA [Suspect]
     Active Substance: MIGLUSTAT
     Indication: NIEMANN-PICK DISEASE
     Dosage: 50 MG, TID
     Route: 048
     Dates: start: 20100304, end: 20110109
  12. LAROXYL [Concomitant]
     Active Substance: AMITRIPTYLINE
     Dosage: UNK
     Dates: start: 2010
  13. ORAMORPH [Concomitant]
     Active Substance: MORPHINE SULFATE
     Indication: PAIN
     Dosage: UNK
     Dates: start: 2013
  14. RIVOTRIL [Concomitant]
     Active Substance: CLONAZEPAM
     Indication: SEIZURE
     Dosage: UNK
     Dates: start: 2013
  15. VALIUM [Concomitant]
     Active Substance: DIAZEPAM
     Dosage: UNK
     Dates: start: 2014
  16. ZAVESCA [Suspect]
     Active Substance: MIGLUSTAT
     Dosage: 150 MG, TID
     Route: 048
     Dates: start: 201203, end: 2012
  17. MOVICOL [Concomitant]
     Active Substance: POLYETHYLENE GLYCOL 3350\POTASSIUM CHLORIDE\SODIUM BICARBONATE\SODIUM CHLORIDE
     Indication: CONSTIPATION
     Dosage: UNK
     Dates: start: 2013
  18. INEXIUM [Concomitant]
     Active Substance: ESOMEPRAZOLE
     Dosage: UNK
     Dates: start: 2014

REACTIONS (19)
  - Muscle spasms [Not Recovered/Not Resolved]
  - Pain [Fatal]
  - Tremor [Not Recovered/Not Resolved]
  - Dysarthria [Not Recovered/Not Resolved]
  - Diarrhoea [Recovered/Resolved]
  - Nephrolithiasis [Not Recovered/Not Resolved]
  - Epistaxis [Recovered/Resolved]
  - Cerebellar syndrome [Not Recovered/Not Resolved]
  - Disease progression [Fatal]
  - Condition aggravated [Not Recovered/Not Resolved]
  - Seizure [Recovered/Resolved]
  - Interstitial lung disease [Recovered/Resolved]
  - Sleep disorder [Not Recovered/Not Resolved]
  - General physical health deterioration [Fatal]
  - Neuropathy peripheral [Not Recovered/Not Resolved]
  - Thrombocytopenia [Not Recovered/Not Resolved]
  - Bronchiolitis [Recovered/Resolved]
  - Niemann-Pick disease [Fatal]
  - Growth retardation [Not Recovered/Not Resolved]

NARRATIVE: CASE EVENT DATE: 201003
